FAERS Safety Report 9918853 (Version 1)
Quarter: 2014Q1

REPORT INFORMATION
  Report Type: Report from Study
  Country: US (occurrence: US)
  Receive Date: 20140224
  Receipt Date: 20140224
  Transmission Date: 20141002
  Serious: Yes (Hospitalization, Other)
  Sender: FDA-Public Use
  Company Number: US-ROCHE-1333627

PATIENT
  Age: 81 Year
  Sex: Female

DRUGS (13)
  1. LUCENTIS [Suspect]
     Indication: AGE-RELATED MACULAR DEGENERATION
     Route: 050
     Dates: start: 20100125
  2. AVASTIN [Suspect]
     Indication: PRODUCT USED FOR UNKNOWN INDICATION
     Dosage: OD
     Route: 065
     Dates: start: 20091015, end: 20091109
  3. AVASTIN [Suspect]
     Dosage: OS
     Route: 065
     Dates: start: 20070702, end: 20091214
  4. FISH OIL [Concomitant]
  5. FOLIC ACID [Concomitant]
  6. OCUFLOX [Concomitant]
     Dosage: OS FOR 4 DAYS
     Route: 065
  7. TRAMADOL HYDROCHLORIDE [Concomitant]
  8. VITAMIN B12 [Concomitant]
  9. VITAMIN B6 [Concomitant]
  10. XANAX [Concomitant]
  11. PHENYLEPHRINE [Concomitant]
     Route: 065
  12. TROPICAMIDE [Concomitant]
     Route: 065
  13. PROPARACAINE [Concomitant]

REACTIONS (11)
  - Food poisoning [Unknown]
  - Macular oedema [Unknown]
  - Pollakiuria [Unknown]
  - Micturition urgency [Unknown]
  - Arthralgia [Unknown]
  - Swelling [Unknown]
  - Musculoskeletal stiffness [Unknown]
  - Back pain [Unknown]
  - Memory impairment [Unknown]
  - Retinal haemorrhage [Unknown]
  - Hypertension [Unknown]
